FAERS Safety Report 17070206 (Version 3)
Quarter: 2020Q4

REPORT INFORMATION
  Report Type: Spontaneous
  Country: US (occurrence: US)
  Receive Date: 20191125
  Receipt Date: 20201229
  Transmission Date: 20210113
  Serious: Yes (Other)
  Sender: FDA-Public Use
  Company Number: US-SA-2019SA326186

PATIENT

DRUGS (1)
  1. KEVZARA [Suspect]
     Active Substance: SARILUMAB
     Indication: RHEUMATOID ARTHRITIS
     Dosage: 200 MG, QOW
     Route: 058
     Dates: start: 20180802

REACTIONS (2)
  - Rheumatoid arthritis [Not Recovered/Not Resolved]
  - Arterial rupture [Not Recovered/Not Resolved]

NARRATIVE: CASE EVENT DATE: 201910
